FAERS Safety Report 24903751 (Version 1)
Quarter: 2025Q1

REPORT INFORMATION
  Report Type: Spontaneous
  Country: US (occurrence: US)
  Receive Date: 20250130
  Receipt Date: 20250130
  Transmission Date: 20250408
  Serious: Yes (Other)
  Sender: COOPERSURGICAL
  Company Number: US-COOPERSURGICAL, INC.-2025CPS000437

PATIENT
  Sex: Female
  Weight: 68.027 kg

DRUGS (2)
  1. PARAGARD T 380A [Suspect]
     Active Substance: COPPER
     Route: 015
     Dates: start: 2014
  2. ATENOLOL [Concomitant]
     Active Substance: ATENOLOL
     Dates: start: 201001, end: 202301

REACTIONS (7)
  - Reproductive complication associated with device [Not Recovered/Not Resolved]
  - Uterine leiomyoma [Recovered/Resolved]
  - Fibrosis [Recovered/Resolved]
  - Hysterectomy [Recovered/Resolved]
  - Device breakage [Recovered/Resolved]
  - Complication of device removal [Recovered/Resolved]
  - Emotional disorder [Unknown]

NARRATIVE: CASE EVENT DATE: 20230101
